FAERS Safety Report 8374181-1 (Version None)
Quarter: 2012Q2

REPORT INFORMATION
  Report Type: 
  Country: None (occurrence: None)
  Receive Date: 20120521
  Receipt Date: 20120503
  Transmission Date: 20120825
  Serious: Yes (Other)
  Sender: FDA-Public Use
  Company Number: IT-GLAXOSMITHKLINE-B0802250A

PATIENT

DRUGS (6)
  1. FUROSEMIDE [Concomitant]
     Route: 048
     Dates: start: 20040420, end: 20120323
  2. CARVEDILOL [Concomitant]
     Route: 048
     Dates: start: 20040420, end: 20120323
  3. VOTRIENT [Suspect]
     Indication: RENAL CELL CARCINOMA
     Dosage: 800MG PER DAY
     Route: 048
     Dates: start: 20110901, end: 20120101
  4. AMLODIPINE BESYLATE [Concomitant]
     Route: 048
     Dates: start: 20040420, end: 20120323
  5. ATORVASTATIN CALCIUM [Concomitant]
     Route: 048
     Dates: start: 20040420, end: 20120323
  6. SPIRONOLACTONE [Concomitant]
     Route: 048
     Dates: start: 20040420, end: 20120323

REACTIONS (1)
  - PANCREATITIS [None]
